FAERS Safety Report 5255333-6 (Version None)
Quarter: 2007Q1

REPORT INFORMATION
  Report Type: 
  Country: None (occurrence: None)
  Receive Date: 20070228
  Receipt Date: 20070202
  Transmission Date: 20070707
  Serious: Yes (Hospitalization)
  Sender: FDA-Public Use
  Company Number: 2007SP001017

PATIENT
  Age: 57 Year
  Sex: Female
  Weight: 58 kg

DRUGS (5)
  1. CLARITIN REDITABS [Suspect]
     Indication: SEBORRHOEIC DERMATITIS
     Dosage: 10 MG; QD; PO
     Route: 048
     Dates: start: 20060825, end: 20061213
  2. MINOCYCLINE HCL [Suspect]
     Indication: FOLLICULITIS
     Dosage: 100 MG; PO
     Route: 048
     Dates: start: 20051125, end: 20061213
  3. PYDOXAL [Concomitant]
  4. FLAVITAN [Concomitant]
  5. CLARITHROMYCIN [Concomitant]

REACTIONS (10)
  - ALANINE AMINOTRANSFERASE INCREASED [None]
  - ASPARTATE AMINOTRANSFERASE INCREASED [None]
  - BLOOD ALKALINE PHOSPHATASE INCREASED [None]
  - BLOOD CREATINE INCREASED [None]
  - BLOOD LACTATE DEHYDROGENASE INCREASED [None]
  - ERYTHEMA [None]
  - FOLLICULITIS [None]
  - GAMMA-GLUTAMYLTRANSFERASE INCREASED [None]
  - HEPATIC FUNCTION ABNORMAL [None]
  - PYREXIA [None]
